FAERS Safety Report 6809072-8 (Version None)
Quarter: 2010Q2

REPORT INFORMATION
  Report Type: 
  Country: None (occurrence: None)
  Receive Date: 20100630
  Receipt Date: 20100625
  Transmission Date: 20101027
  Serious: Yes (Hospitalization)
  Sender: FDA-Public Use
  Company Number: US-BIOGENIDEC-2010BI017779

PATIENT
  Age: 53 Year
  Sex: Female
  Weight: 71 kg

DRUGS (3)
  1. TYSABRI [Suspect]
     Indication: MULTIPLE SCLEROSIS
     Route: 042
     Dates: start: 20070926, end: 20100413
  2. ACYCLOVIR [Concomitant]
     Indication: ANTIVIRAL PROPHYLAXIS
  3. LORCET-HD [Concomitant]
     Dosage: DOSE UNIT:

REACTIONS (6)
  - CHAPPED LIPS [None]
  - CONTUSION [None]
  - GINGIVAL BLEEDING [None]
  - HERPES ZOSTER [None]
  - LIP HAEMORRHAGE [None]
  - PAIN [None]
